FAERS Safety Report 11074694 (Version 2)
Quarter: 2015Q2

REPORT INFORMATION
  Report Type: Report from Study
  Country: ES (occurrence: ES)
  Receive Date: 20150429
  Receipt Date: 20150501
  Transmission Date: 20150821
  Serious: Yes (Death)
  Sender: FDA-Public Use
  Company Number: ES-CELGENE-ESP-2015044013

PATIENT
  Sex: Female

DRUGS (2)
  1. AZACITIDINE INJECTABLE [Suspect]
     Active Substance: AZACITIDINE
     Indication: MYELODYSPLASTIC SYNDROME
     Route: 065
     Dates: start: 20140705
  2. VIDAZA [Suspect]
     Active Substance: AZACITIDINE

REACTIONS (1)
  - Death [Fatal]
